FAERS Safety Report 9182245 (Version 1)
Quarter: 2013Q1

REPORT INFORMATION
  Report Type: Spontaneous
  Country: US (occurrence: None)
  Receive Date: 20130321
  Receipt Date: 20130321
  Transmission Date: 20140127
  Serious: Yes (Disabling)
  Sender: FDA-Public Use
  Company Number: None

PATIENT
  Age: 63 Year
  Sex: Female
  Weight: 86.18 kg

DRUGS (1)
  1. LEVOFLOXACIN [Suspect]
     Dosage: 500 MG DAILY ORAL
     Route: 048
     Dates: start: 20120214, end: 20120224

REACTIONS (4)
  - Tendon pain [None]
  - Gait disturbance [None]
  - Activities of daily living impaired [None]
  - Dysstasia [None]
